FAERS Safety Report 15326436 (Version 1)
Quarter: 2018Q3

REPORT INFORMATION
  Report Type: Spontaneous
  Country: CH (occurrence: CH)
  Receive Date: 20180828
  Receipt Date: 20180828
  Transmission Date: 20181010
  Serious: Yes (Other)
  Sender: FDA-Public Use
  Company Number: CH-PENTEC HEALTH-2018PEN00042

PATIENT
  Sex: Female

DRUGS (4)
  1. MAGNESIUM SULFATE. [Suspect]
     Active Substance: MAGNESIUM SULFATE
     Dosage: 4 G/HR FOR 2 HOURS
     Route: 042
  2. INDOMETHACIN. [Concomitant]
     Active Substance: INDOMETHACIN
     Dosage: PERIOPERATIVELY
     Route: 065
  3. MAGNESIUM SULFATE. [Suspect]
     Active Substance: MAGNESIUM SULFATE
     Dosage: 3 G/H FOR 6 HOURS
     Route: 042
  4. MAGNESIUM SULFATE. [Suspect]
     Active Substance: MAGNESIUM SULFATE
     Indication: FOETAL SURGERY
     Dosage: 6 MG, ONCE OVER 20 MINUTES
     Route: 042

REACTIONS (3)
  - Atrioventricular block complete [Recovered/Resolved]
  - Electrolyte imbalance [Recovered/Resolved]
  - Lethargy [Recovered/Resolved]
